FAERS Safety Report 14278106 (Version 5)
Quarter: 2018Q1

REPORT INFORMATION
  Report Type: Spontaneous
  Country: US (occurrence: US)
  Receive Date: 20171212
  Receipt Date: 20180327
  Transmission Date: 20180508
  Serious: No
  Sender: FDA-Public Use
  Company Number: US-PFIZER INC-2017528565

PATIENT
  Age: 49 Year
  Sex: Female

DRUGS (1)
  1. XELJANZ XR [Suspect]
     Active Substance: TOFACITINIB CITRATE
     Dosage: 11 MG, UNK
     Dates: start: 201711

REACTIONS (7)
  - Fatigue [Unknown]
  - Anxiety [Unknown]
  - Abdominal discomfort [Recovering/Resolving]
  - Oropharyngeal pain [Unknown]
  - Dermatitis [Unknown]
  - Insomnia [Unknown]
  - Dry skin [Unknown]
